FAERS Safety Report 22292491 (Version 1)
Quarter: 2023Q2

REPORT INFORMATION
  Report Type: Spontaneous
  Country: SE (occurrence: None)
  Receive Date: 20230508
  Receipt Date: 20230508
  Transmission Date: 20230722
  Serious: Yes (Other)
  Sender: FDA-Public Use
  Company Number: SE-MLMSERVICE-20230428-4253242-3

PATIENT
  Age: 69 Year
  Sex: Male

DRUGS (4)
  1. METHOTREXATE [Suspect]
     Active Substance: METHOTREXATE
     Indication: Bladder cancer
  2. CISPLATIN [Suspect]
     Active Substance: CISPLATIN
     Indication: Bladder cancer
  3. ADRIAMYCIN [Suspect]
     Active Substance: DOXORUBICIN HYDROCHLORIDE
     Indication: Bladder cancer
  4. VINBLASTINE [Suspect]
     Active Substance: VINBLASTINE
     Indication: Bladder cancer

REACTIONS (4)
  - Pulmonary embolism [Recovering/Resolving]
  - Febrile neutropenia [Recovering/Resolving]
  - Product use in unapproved indication [Unknown]
  - Back pain [Recovering/Resolving]
